FAERS Safety Report 12087484 (Version 1)
Quarter: 2016Q1

REPORT INFORMATION
  Report Type: Spontaneous
  Country: US (occurrence: US)
  Receive Date: 20160217
  Receipt Date: 20160217
  Transmission Date: 20160526
  Serious: No
  Sender: FDA-Public Use
  Company Number: US-ALLERGAN-1516546US

PATIENT
  Sex: Female
  Weight: 67.12 kg

DRUGS (1)
  1. RESTASIS [Suspect]
     Active Substance: CYCLOSPORINE
     Indication: BLEPHARITIS
     Dosage: 1 DROP EACH EYE, BID
     Route: 047

REACTIONS (4)
  - Punctal plug insertion [Recovered/Resolved]
  - Eye irritation [Not Recovered/Not Resolved]
  - Eye irritation [Recovered/Resolved]
  - Wrong technique in product usage process [Unknown]
